FAERS Safety Report 14854798 (Version 4)
Quarter: 2020Q1

REPORT INFORMATION
  Report Type: Spontaneous
  Country: FR (occurrence: FR)
  Receive Date: 20180507
  Receipt Date: 20200102
  Transmission Date: 20200409
  Serious: Yes (Hospitalization, Other)
  Sender: FDA-Public Use
  Company Number: FR-MYLANLABS-2018M1029441

PATIENT
  Age: 65 Year
  Sex: Male

DRUGS (10)
  1. IBRUTINIB [Interacting]
     Active Substance: IBRUTINIB
     Dosage: 400 MILLIGRAM, QD
     Route: 065
  2. RITUXIMAB. [Suspect]
     Active Substance: RITUXIMAB
     Indication: CHRONIC LYMPHOCYTIC LEUKAEMIA
     Dosage: 500 MILLIGRAM/SQ. METER, Q2W, (DOSAGE FORM: UNSPECIFIED)
     Route: 065
  3. VORICONAZOLE. [Suspect]
     Active Substance: VORICONAZOLE
     Indication: CEREBRAL ASPERGILLOSIS
     Dosage: UNK, (DOSAGE FORM: UNSPECIFIED)
     Route: 048
  4. IBRUTINIB [Interacting]
     Active Substance: IBRUTINIB
     Indication: CHRONIC LYMPHOCYTIC LEUKAEMIA
     Dosage: 420 MILLIGRAM, QD
     Route: 048
  5. IBRUTINIB [Interacting]
     Active Substance: IBRUTINIB
     Dosage: 420 MILLIGRAM, QD
     Route: 065
  6. IBRUTINIB [Interacting]
     Active Substance: IBRUTINIB
     Dosage: 140 MILLIGRAM, QD
     Route: 048
  7. PREDNISONE. [Suspect]
     Active Substance: PREDNISONE
     Dosage: 1.5 MILLIGRAM/KILOGRAM, QD, (DOSAGE FORM: UNSPECIFIED)
     Route: 065
  8. VORICONAZOLE. [Interacting]
     Active Substance: VORICONAZOLE
     Indication: BRONCHOPULMONARY ASPERGILLOSIS
  9. VORICONAZOLE. [Interacting]
     Active Substance: VORICONAZOLE
     Indication: ASPERGILLUS INFECTION
  10. PREDNISONE. [Suspect]
     Active Substance: PREDNISONE
     Indication: CHRONIC LYMPHOCYTIC LEUKAEMIA
     Dosage: 20 MILLIGRAM, QD, (DOSAGE FORM: UNSPECIFIED)
     Route: 065

REACTIONS (11)
  - Pleural effusion [Recovered/Resolved]
  - Dizziness [Recovered/Resolved]
  - Pulmonary mass [Recovered/Resolved]
  - Cerebral aspergillosis [Recovered/Resolved]
  - Dyspnoea [Recovered/Resolved]
  - Cough [Recovered/Resolved]
  - Bronchopulmonary aspergillosis [Recovering/Resolving]
  - Balance disorder [Recovered/Resolved]
  - Pulmonary haemorrhage [Recovered/Resolved]
  - Hemiparesis [Recovered/Resolved]
  - Drug interaction [Recovered/Resolved]
